FAERS Safety Report 6714274-5 (Version None)
Quarter: 2010Q2

REPORT INFORMATION
  Report Type: 
  Country: None (occurrence: None)
  Receive Date: 20100506
  Receipt Date: 20091103
  Transmission Date: 20101027
  Serious: No
  Sender: FDA-Public Use
  Company Number: US-BAUSCH-2009BL005597

PATIENT
  Sex: Female

DRUGS (2)
  1. LOTEMAX [Suspect]
     Indication: DRUG USE FOR UNKNOWN INDICATION
     Route: 047
     Dates: start: 20090916, end: 20090901
  2. RESTASIS [Suspect]
     Indication: DRY EYE
     Route: 047
     Dates: start: 20090916

REACTIONS (1)
  - DIZZINESS [None]
